FAERS Safety Report 24319890 (Version 2)
Quarter: 2024Q4

REPORT INFORMATION
  Report Type: Spontaneous
  Country: US (occurrence: US)
  Receive Date: 20240914
  Receipt Date: 20241010
  Transmission Date: 20250115
  Serious: No
  Sender: APOTEX
  Company Number: US-APOTEX-2024AP010284

PATIENT
  Sex: Female

DRUGS (4)
  1. DILTIAZEM [Suspect]
     Active Substance: DILTIAZEM
     Indication: Supraventricular tachycardia
     Dosage: 120 MILLIGRAM, QD
     Route: 048
     Dates: start: 20240614, end: 20240715
  2. DILTIAZEM [Suspect]
     Active Substance: DILTIAZEM
     Indication: Scleroderma
  3. DILTIAZEM [Suspect]
     Active Substance: DILTIAZEM
     Indication: Supraventricular tachycardia
     Dosage: 180 MILLIGRAM, QD
     Route: 048
     Dates: start: 20240715
  4. DILTIAZEM [Suspect]
     Active Substance: DILTIAZEM
     Indication: Scleroderma

REACTIONS (6)
  - Supraventricular tachycardia [Unknown]
  - Fall [Unknown]
  - Vertigo [Recovering/Resolving]
  - Lymphadenopathy [Recovered/Resolved]
  - Pain [Recovered/Resolved]
  - Drug effect less than expected [Unknown]

NARRATIVE: CASE EVENT DATE: 20240101
